FAERS Safety Report 11312198 (Version 1)
Quarter: 2015Q3

REPORT INFORMATION
  Report Type: Spontaneous
  Country: JP (occurrence: JP)
  Receive Date: 20150727
  Receipt Date: 20150727
  Transmission Date: 20151125
  Serious: Yes (Hospitalization, Other)
  Sender: FDA-Public Use
  Company Number: JP-BAYER-2015-380617

PATIENT
  Sex: Male
  Weight: 2.14 kg

DRUGS (3)
  1. RITODRINE HYDROCHLORIDE [Concomitant]
     Active Substance: RITODRINE HYDROCHLORIDE
     Dosage: UNK
     Route: 064
  2. NIFEDIPINE. [Suspect]
     Active Substance: NIFEDIPINE
     Dosage: UNK
     Route: 064
  3. MAGNESIUM SULFATE. [Concomitant]
     Active Substance: MAGNESIUM SULFATE
     Dosage: UNK
     Route: 064

REACTIONS (5)
  - Low birth weight baby [None]
  - Baseline foetal heart rate variability disorder [None]
  - Foetal heart rate deceleration abnormality [None]
  - Premature baby [None]
  - Foetal exposure timing unspecified [Recovered/Resolved]
